FAERS Safety Report 6714856-0 (Version None)
Quarter: 2010Q2

REPORT INFORMATION
  Report Type: 
  Country: None (occurrence: None)
  Receive Date: 20100507
  Receipt Date: 20100430
  Transmission Date: 20101027
  Serious: Yes (Other)
  Sender: FDA-Public Use
  Company Number: US-CEPHALON-2010000775

PATIENT
  Sex: Female
  Weight: 64 kg

DRUGS (5)
  1. NUVIGIL [Suspect]
     Indication: SLEEP APNOEA SYNDROME
     Route: 048
     Dates: start: 20100101, end: 20100201
  2. SYNTHROID [Concomitant]
     Dates: start: 20000101
  3. PLAQUENIL [Concomitant]
     Dates: start: 20040101
  4. TRICOR [Concomitant]
  5. METFORMIN [Concomitant]
     Dates: start: 20000101

REACTIONS (5)
  - DYSPHAGIA [None]
  - ERYTHEMA [None]
  - HYPERSENSITIVITY [None]
  - RESPIRATORY DISORDER [None]
  - THROAT TIGHTNESS [None]
